FAERS Safety Report 4741466-7 (Version None)
Quarter: 2005Q3

REPORT INFORMATION
  Report Type: 
  Country: None (occurrence: None)
  Receive Date: 20050808
  Receipt Date: 20050725
  Transmission Date: 20060218
  Serious: Yes (Other)
  Sender: FDA-Public Use
  Company Number: 211564

PATIENT
  Age: 53 Year
  Sex: Female
  Weight: 87 kg

DRUGS (7)
  1. MABTHERA (RITUXIMAB) CONC FOR SOLUTION FOR INFUSION [Suspect]
     Indication: LYMPHOMA
     Dosage: 616 MG, INTRAVENOUS
     Route: 042
     Dates: start: 20040913, end: 20040913
  2. CYCLOPHOSPHAMIDE [Suspect]
     Indication: LYMPHOMA
     Dosage: 991.6 MG, INTRAVENOUS
     Route: 042
     Dates: start: 20040922, end: 20040924
  3. DOXORUBICIN HCL [Suspect]
     Indication: LYMPHOMA
     Dosage: 54.94 MG, INTRAVENOUS
     Route: 042
     Dates: start: 20040922, end: 20040925
  4. VINCRISTINE SULFATE [Suspect]
     Indication: LYMPHOMA
     Dosage: 2 MG, INTRAVENOUS
     Route: 042
     Dates: start: 20040922, end: 20040925
  5. DECADRON [Concomitant]
  6. KYTRIL [Concomitant]
  7. MESNA [Concomitant]

REACTIONS (1)
  - PANCYTOPENIA [None]
